FAERS Safety Report 9650800 (Version 3)
Quarter: 2013Q4

REPORT INFORMATION
  Report Type: Spontaneous
  Country: BR (occurrence: BR)
  Receive Date: 20131029
  Receipt Date: 20131108
  Transmission Date: 20140711
  Serious: Yes (Other)
  Sender: FDA-Public Use
  Company Number: BR-AMGEN-BRASP2013076277

PATIENT
  Sex: Female

DRUGS (4)
  1. ENBREL [Suspect]
     Indication: RHEUMATOID ARTHRITIS
     Dosage: 50 MG, UNK
     Route: 065
     Dates: start: 2010
  2. ENBREL [Suspect]
     Dosage: 25 MG, UNK
     Route: 065
     Dates: start: 2010
  3. METHOTREXATE [Concomitant]
     Dosage: UNK
     Dates: start: 2003
  4. PREDNISONE [Concomitant]
     Dosage: UNK

REACTIONS (1)
  - Monoclonal gammopathy [Unknown]
